FAERS Safety Report 8089945-1 (Version None)
Quarter: 2012Q1

REPORT INFORMATION
  Report Type: 
  Country: None (occurrence: None)
  Receive Date: 20120129
  Receipt Date: 20110921
  Transmission Date: 20120608
  Serious: No
  Sender: FDA-Public Use
  Company Number: US-ABBOTT-11P-163-0856981-00

PATIENT
  Sex: Female
  Weight: 54.48 kg

DRUGS (2)
  1. SULFSALAZINE [Concomitant]
     Indication: ANKYLOSING SPONDYLITIS
  2. HUMIRA [Suspect]
     Indication: ANKYLOSING SPONDYLITIS
     Dates: start: 20110830

REACTIONS (2)
  - NAUSEA [None]
  - ARTHRALGIA [None]
